FAERS Safety Report 7463561-4 (Version None)
Quarter: 2011Q2

REPORT INFORMATION
  Report Type: 
  Country: None (occurrence: None)
  Receive Date: 20110506
  Receipt Date: 20110427
  Transmission Date: 20111010
  Serious: Yes (Hospitalization)
  Sender: FDA-Public Use
  Company Number: JP-ELI_LILLY_AND_COMPANY-JP201104006043

PATIENT
  Age: 77 Year
  Sex: Male

DRUGS (7)
  1. ALIMTA [Suspect]
     Indication: NON-SMALL CELL LUNG CANCER
     Dosage: UNK
     Route: 042
     Dates: start: 20110413, end: 20110413
  2. EMEND [Concomitant]
     Dosage: UNK
     Route: 065
  3. VITAMIN B-12 [Concomitant]
  4. ALOXI [Concomitant]
     Dosage: UNK
     Route: 065
  5. CORTICOSTEROIDS [Concomitant]
  6. RANDA [Concomitant]
     Indication: NON-SMALL CELL LUNG CANCER
     Dosage: UNK
     Route: 042
     Dates: start: 20110413, end: 20110413
  7. FOLIC ACID [Concomitant]

REACTIONS (2)
  - ATRIOVENTRICULAR BLOCK SECOND DEGREE [None]
  - NAUSEA [None]
